FAERS Safety Report 25368391 (Version 1)
Quarter: 2025Q2

REPORT INFORMATION
  Report Type: Spontaneous
  Country: US (occurrence: None)
  Receive Date: 20250527
  Receipt Date: 20250527
  Transmission Date: 20250716
  Serious: Yes (Other)
  Sender: FDA-CTU
  Company Number: None

PATIENT
  Age: 69 Year
  Sex: Male
  Weight: 112.5 kg

DRUGS (10)
  1. ZYRTEC [Suspect]
     Active Substance: CETIRIZINE HYDROCHLORIDE
     Indication: Multiple allergies
     Dosage: 1 TABLET AT BEDTIME ?
     Dates: start: 20200101, end: 20250527
  2. ALLOPURINOL [Concomitant]
     Active Substance: ALLOPURINOL
  3. FENOFIBRATE [Concomitant]
     Active Substance: FENOFIBRATE
  4. UNSPECIFIED INGREDIENT [Concomitant]
     Active Substance: UNSPECIFIED INGREDIENT
  5. EZETIMIBE [Concomitant]
     Active Substance: EZETIMIBE
  6. DICYCLOMINE [Concomitant]
     Active Substance: DICYCLOMINE HYDROCHLORIDE
  7. VASCEPA [Concomitant]
     Active Substance: ICOSAPENT ETHYL
  8. VITAMIN D3 [Concomitant]
     Active Substance: CHOLECALCIFEROL
  9. B12 [Concomitant]
  10. Multi [Concomitant]

REACTIONS (2)
  - Illness [None]
  - Drug withdrawal syndrome [None]

NARRATIVE: CASE EVENT DATE: 20250116
